FAERS Safety Report 14627951 (Version 7)
Quarter: 2020Q2

REPORT INFORMATION
  Report Type: Report from Study
  Country: US (occurrence: US)
  Receive Date: 20180312
  Receipt Date: 20200629
  Transmission Date: 20200713
  Serious: Yes (Hospitalization)
  Sender: FDA-Public Use
  Company Number: US-ACTELION-A-NJ2018-168879

PATIENT
  Sex: Male
  Weight: 11.34 kg

DRUGS (4)
  1. TRACLEER [Suspect]
     Active Substance: BOSENTAN
     Indication: PULMONARY HYPERTENSION
     Dosage: 32 MG, BID
     Route: 048
     Dates: start: 20170815
  2. TRACLEER [Suspect]
     Active Substance: BOSENTAN
     Dosage: 16 MG, BID
     Route: 048
     Dates: start: 20180917
  3. REMODULIN [Concomitant]
     Active Substance: TREPROSTINIL
     Dosage: 62 NG/KG, PER MIN
  4. TADALAFIL. [Concomitant]
     Active Substance: TADALAFIL

REACTIONS (9)
  - Unevaluable event [Unknown]
  - Scratch [Unknown]
  - Diagnostic procedure [Unknown]
  - Laryngeal granuloma [Unknown]
  - Aspartate aminotransferase increased [Recovering/Resolving]
  - Liver function test abnormal [Recovering/Resolving]
  - Gastrostomy tube removal [Unknown]
  - Flushing [Unknown]
  - Alanine aminotransferase increased [Recovering/Resolving]
